FAERS Safety Report 22304253 (Version 4)
Quarter: 2024Q2

REPORT INFORMATION
  Report Type: Spontaneous
  Country: US (occurrence: US)
  Receive Date: 20230510
  Receipt Date: 20240411
  Transmission Date: 20240716
  Serious: Yes (Other)
  Sender: FDA-Public Use
  Company Number: US-PFIZER INC-PV202300082889

PATIENT
  Age: 53 Year
  Sex: Male

DRUGS (2)
  1. CIBINQO [Suspect]
     Active Substance: ABROCITINIB
     Dosage: 100 MG, DAILY
     Route: 048
  2. CIBINQO [Suspect]
     Active Substance: ABROCITINIB
     Dosage: 100 MG, 2 TABLETS DAILY, IS DENIED

REACTIONS (5)
  - Tuberculosis [Unknown]
  - Off label use [Unknown]
  - Product dose omission issue [Unknown]
  - Pruritus [Unknown]
  - Dyspepsia [Unknown]
